FAERS Safety Report 8270552-2 (Version None)
Quarter: 2012Q2

REPORT INFORMATION
  Report Type: 
  Country: None (occurrence: None)
  Receive Date: 20120410
  Receipt Date: 20120402
  Transmission Date: 20120825
  Serious: Yes (Hospitalization)
  Sender: FDA-Public Use
  Company Number: US-AMGEN-USACT2012020816

PATIENT
  Age: 62 Year
  Sex: Male
  Weight: 65.5 kg

DRUGS (24)
  1. COREG [Concomitant]
     Dosage: UNK
     Dates: start: 20010101
  2. OPANA [Concomitant]
     Dosage: UNK
  3. TRINOTECAN [Concomitant]
     Indication: OESOPHAGEAL CARCINOMA
     Dosage: 20 MG/ML, UNK
     Dates: start: 20111208
  4. ASPIRIN [Concomitant]
     Dosage: UNK
     Dates: start: 20010101
  5. ZOFRAN [Concomitant]
     Dosage: UNK
     Dates: start: 20110101
  6. MEGACE [Concomitant]
     Dosage: UNK
     Dates: start: 20110101
  7. KYTRIL [Concomitant]
  8. NEURONTIN [Concomitant]
     Dosage: UNK
     Dates: start: 20110101
  9. AMBIEN [Concomitant]
     Dosage: UNK
     Dates: start: 20110101
  10. METFORMIN HCL [Concomitant]
     Dosage: UNK
     Dates: start: 20110101
  11. PANITUMUMAB [Suspect]
     Indication: OESOPHAGEAL CARCINOMA
     Dosage: 200 MG/ML, UNK
     Dates: start: 20111208
  12. FOLBIC [Concomitant]
     Dosage: UNK
     Dates: start: 20020101
  13. FLOMAX [Concomitant]
     Dosage: UNK
     Dates: start: 20110101
  14. LOVENOX [Concomitant]
     Dosage: UNK
  15. ATROPINE [Concomitant]
     Dosage: UNK
     Dates: start: 20111201
  16. SIMVASTATIN [Concomitant]
     Dosage: UNK
     Dates: start: 20020101
  17. ARICEPT [Concomitant]
     Dosage: UNK
  18. PLAVIX [Concomitant]
     Dosage: UNK
  19. DECADRON [Concomitant]
     Dosage: UNK
     Dates: start: 20110101
  20. CELEXA [Concomitant]
     Dosage: UNK
     Dates: start: 20100101
  21. PROTONIX [Concomitant]
     Dosage: UNK
     Dates: start: 20110101
  22. LANTUS [Concomitant]
     Dosage: UNK
     Dates: start: 20110101
  23. OXYCODONE HCL [Concomitant]
     Dosage: UNK
     Dates: start: 20110101
  24. PERCOCET [Concomitant]
     Dosage: UNK
     Dates: start: 20110101

REACTIONS (11)
  - STAPHYLOCOCCAL INFECTION [None]
  - HYPOTENSION [None]
  - DIARRHOEA [None]
  - ABDOMINAL DISTENSION [None]
  - MALNUTRITION [None]
  - DEHYDRATION [None]
  - NAUSEA [None]
  - HYPOKALAEMIA [None]
  - ABDOMINAL PAIN [None]
  - VOMITING [None]
  - HAEMOGLOBIN DECREASED [None]
